FAERS Safety Report 14629298 (Version 2)
Quarter: 2018Q2

REPORT INFORMATION
  Report Type: Report from Study
  Country: None (occurrence: CA)
  Receive Date: 20180313
  Receipt Date: 20180402
  Transmission Date: 20180711
  Serious: Yes (Other)
  Sender: FDA-Public Use
  Company Number: CA-ABBVIE-18K-028-2270581-00

PATIENT
  Age: 56 Year
  Sex: Female

DRUGS (2)
  1. HUMIRA [Suspect]
     Active Substance: ADALIMUMAB
     Route: 058
     Dates: start: 2018
  2. HUMIRA [Suspect]
     Active Substance: ADALIMUMAB
     Indication: CROHN^S DISEASE
     Route: 058
     Dates: start: 20150415, end: 20180202

REACTIONS (4)
  - Crohn^s disease [Unknown]
  - Gastrointestinal stoma complication [Recovering/Resolving]
  - Post procedural complication [Unknown]
  - Stoma site inflammation [Recovering/Resolving]

NARRATIVE: CASE EVENT DATE: 201802
